FAERS Safety Report 17410783 (Version 1)
Quarter: 2020Q1

REPORT INFORMATION
  Report Type: Other
  Country: US (occurrence: US)
  Receive Date: 20200212
  Receipt Date: 20200212
  Transmission Date: 20200409
  Serious: Yes (Other)
  Sender: FDA-Public Use
  Company Number: US-GUTHY-RENKER, LLC-2080237

PATIENT
  Age: 33 Year
  Sex: Female

DRUGS (2)
  1. ACCELERATED DARK SPOT CORRECTOR [Suspect]
     Active Substance: HYDROQUINONE
     Indication: SKIN DISCOLOURATION
     Dates: start: 201911, end: 20200129
  2. ACTIVE RADIANCE DAY MOISTURE SPF 30 [Suspect]
     Active Substance: AVOBENZONE\OCTINOXATE\OCTISALATE\OCTOCRYLENE\OXYBENZONE
     Dates: start: 201911, end: 20200129

REACTIONS (4)
  - Asthma [None]
  - Dyspnoea [Recovered/Resolved]
  - Sinus disorder [None]
  - Hypersensitivity [None]

NARRATIVE: CASE EVENT DATE: 201911
